FAERS Safety Report 7282067-9 (Version None)
Quarter: 2011Q1

REPORT INFORMATION
  Report Type: 
  Country: None (occurrence: None)
  Receive Date: 20110208
  Receipt Date: 20110207
  Transmission Date: 20110831
  Serious: Yes (Death, Hospitalization)
  Sender: FDA-Public Use
  Company Number: TR-ABBOTT-11P-161-0702907-00

PATIENT
  Age: 23 Year
  Sex: Female
  Weight: 50 kg

DRUGS (2)
  1. HUMIRA [Suspect]
     Indication: CROHN'S DISEASE
     Route: 058
     Dates: start: 20091201, end: 20101215
  2. HUMIRA [Suspect]
     Indication: FISTULA

REACTIONS (4)
  - INFECTION [None]
  - HERPES VIRUS INFECTION [None]
  - RESPIRATORY DISORDER [None]
  - ABSCESS [None]
